FAERS Safety Report 7470298-4 (Version None)
Quarter: 2011Q2

REPORT INFORMATION
  Report Type: 
  Country: None (occurrence: None)
  Receive Date: 20110510
  Receipt Date: 20110502
  Transmission Date: 20111010
  Serious: Yes (Other)
  Sender: FDA-Public Use
  Company Number: CA-GENZYME-CAMP-1000841

PATIENT
  Sex: Female

DRUGS (10)
  1. METHYLPEDNISOLONE SODIUM SUCCINATE [Concomitant]
     Dosage: 1 G, QD
     Route: 042
     Dates: start: 20100118, end: 20100120
  2. RITALIN [Concomitant]
     Indication: ATTENTION DEFICIT/HYPERACTIVITY DISORDER
     Dosage: 5 MG, BID
     Route: 048
     Dates: start: 20100110
  3. CAMPATH [Suspect]
     Indication: MULTIPLE SCLEROSIS
     Dosage: 12 MG, QDX5
     Route: 042
     Dates: start: 20090112, end: 20090116
  4. ROBAXACET [Concomitant]
     Indication: PRODUCT USED FOR UNKNOWN INDICATION
     Dosage: 1 TAB, PRN
     Route: 048
     Dates: start: 20090316
  5. ADVIL LIQUI-GELS [Concomitant]
     Indication: PRODUCT USED FOR UNKNOWN INDICATION
     Dosage: 400 MG, PRN
     Route: 048
     Dates: start: 20100118
  6. CELEXA [Concomitant]
     Indication: PRODUCT USED FOR UNKNOWN INDICATION
     Dosage: 40 MG, QD
     Route: 048
     Dates: start: 20100715
  7. CAMPATH [Suspect]
     Dosage: 12 MG, QDX3
     Route: 042
     Dates: start: 20100118, end: 20100120
  8. VENTOLIN [Concomitant]
     Indication: ASTHMA
     Dosage: 2 PUFFS, PRN
     Dates: start: 19800101
  9. METHYLPEDNISOLONE SODIUM SUCCINATE [Concomitant]
     Indication: MULTIPLE SCLEROSIS
     Dosage: 1 G, QD
     Route: 042
     Dates: start: 20090112, end: 20090114
  10. NAPROXEN (ALEVE) [Concomitant]
     Indication: PAIN
     Dosage: 220 MG, PRN
     Route: 048
     Dates: start: 20000101

REACTIONS (3)
  - THYROXINE FREE INCREASED [None]
  - HYPERTHYROIDISM [None]
  - TRI-IODOTHYRONINE FREE INCREASED [None]
